FAERS Safety Report 6945991-X (Version None)
Quarter: 2010Q3

REPORT INFORMATION
  Report Type: 
  Country: None (occurrence: None)
  Receive Date: 20100824
  Receipt Date: 20100813
  Transmission Date: 20110219
  Serious: Yes (Other)
  Sender: FDA-Public Use
  Company Number: 2010EU002281

PATIENT
  Sex: Female
  Weight: 85 kg

DRUGS (7)
  1. SOLIFENACIN SUCCINATE (VESICARE) [Suspect]
     Indication: HYPERTONIC BLADDER
     Dosage: 10 MG, UID/QD, ORAL
     Route: 048
     Dates: start: 20091120
  2. METFORMIN HCL [Concomitant]
  3. AMLODIPINE BESYLATE [Concomitant]
  4. CARBIMAZOL (CARBIMAZOLE) [Concomitant]
  5. ESTRIOL (ESTRIOL) [Concomitant]
  6. TIMOLOL MALEATE [Concomitant]
  7. SIMVASTATIN [Concomitant]

REACTIONS (1)
  - INTRAOCULAR PRESSURE INCREASED [None]
